FAERS Safety Report 14370520 (Version 1)
Quarter: 2018Q1

REPORT INFORMATION
  Report Type: Spontaneous
  Country: US (occurrence: US)
  Receive Date: 20180110
  Receipt Date: 20180110
  Transmission Date: 20180509
  Serious: No
  Sender: FDA-Public Use
  Company Number: US-PFIZER INC-2018005424

PATIENT
  Age: 44 Year
  Sex: Female
  Weight: 29.25 kg

DRUGS (7)
  1. NEURONTIN [Suspect]
     Active Substance: GABAPENTIN
     Indication: INFUSION SITE PAIN
  2. REMODULIN [Suspect]
     Active Substance: TREPROSTINIL
     Indication: PULMONARY HYPERTENSION
     Dosage: 0.012 UG/KG, UNK (12 NG/KG/MIN))
     Route: 058
     Dates: start: 20170825
  3. NEURONTIN [Suspect]
     Active Substance: GABAPENTIN
     Indication: PULMONARY HYPERTENSION
     Dosage: UNK
     Dates: start: 201712
  4. REMODULIN [Suspect]
     Active Substance: TREPROSTINIL
     Dosage: UNK (12 NG/KG/MIN)
     Route: 058
  5. TRACLEER [Concomitant]
     Active Substance: BOSENTAN
     Dosage: UNK
  6. REMODULIN [Suspect]
     Active Substance: TREPROSTINIL
     Indication: PULMONARY ARTERIAL HYPERTENSION
     Dosage: 0.022 UG/KG, UNK
     Route: 058
     Dates: end: 2017
  7. COUMADIN [Concomitant]
     Active Substance: WARFARIN SODIUM
     Dosage: UNK

REACTIONS (10)
  - Gait disturbance [Unknown]
  - Feeling abnormal [Unknown]
  - Somnolence [Unknown]
  - Nausea [Unknown]
  - Dizziness [Unknown]
  - Neuralgia [Unknown]
  - Infusion site swelling [Unknown]
  - Product use in unapproved indication [Unknown]
  - Injection site pain [Unknown]
  - Infusion site discolouration [Unknown]

NARRATIVE: CASE EVENT DATE: 2017
